FAERS Safety Report 8152133-4 (Version None)
Quarter: 2012Q1

REPORT INFORMATION
  Report Type: 
  Country: None (occurrence: None)
  Receive Date: 20120221
  Receipt Date: 20120217
  Transmission Date: 20120608
  Serious: Yes (Hospitalization)
  Sender: FDA-Public Use
  Company Number: US-PFIZER INC-2011299893

PATIENT
  Sex: Male
  Weight: 103 kg

DRUGS (6)
  1. SUTENT [Suspect]
     Indication: RENAL CELL CARCINOMA STAGE IV
     Dosage: 15 MG, DAILY, 3/2 SCHEDULE
     Route: 048
     Dates: start: 20070101, end: 20070101
  2. SUTENT [Suspect]
     Dosage: 15 MG, DAILY
     Route: 048
     Dates: start: 20080101
  3. NEURONTIN [Concomitant]
     Dosage: 600 MG, 3X/DAY
  4. PRILOSEC [Concomitant]
     Dosage: 40 MG, DAILY
  5. MORPHINE [Concomitant]
  6. NEXIUM [Concomitant]

REACTIONS (6)
  - PNEUMONIA [None]
  - THYROID DISORDER [None]
  - HYPERTENSION [None]
  - PROTEIN URINE PRESENT [None]
  - DISEASE PROGRESSION [None]
  - RENAL CELL CARCINOMA STAGE IV [None]
